APPROVED DRUG PRODUCT: OSMOVIST 190
Active Ingredient: IOTROLAN
Strength: 40.6%
Dosage Form/Route: INJECTABLE;INTRATHECAL
Application: N019580 | Product #001
Applicant: BAYER HEALTHCARE PHARMACEUTICALS INC
Approved: Dec 7, 1989 | RLD: No | RS: No | Type: DISCN